FAERS Safety Report 11108177 (Version 3)
Quarter: 2015Q2

REPORT INFORMATION
  Report Type: Spontaneous
  Country: US (occurrence: US)
  Receive Date: 20150512
  Receipt Date: 20150618
  Transmission Date: 20150821
  Serious: No
  Sender: FDA-Public Use
  Company Number: US-GLAXOSMITHKLINE-US2015GSK063137

PATIENT
  Sex: Female

DRUGS (2)
  1. TANZEUM [Suspect]
     Active Substance: ALBIGLUTIDE
     Indication: TYPE 2 DIABETES MELLITUS
     Dosage: 30 MG, WE
     Route: 058
     Dates: start: 2015
  2. TANZEUM [Suspect]
     Active Substance: ALBIGLUTIDE
     Dosage: 50 MG, WE
     Route: 058

REACTIONS (9)
  - Contusion [Unknown]
  - Headache [Unknown]
  - Device use error [Unknown]
  - Blood glucose increased [Unknown]
  - Malaise [Unknown]
  - Abdominal pain upper [Unknown]
  - Accidental exposure to product [Unknown]
  - Burning sensation [Unknown]
  - Pruritus [Unknown]
